FAERS Safety Report 26096907 (Version 1)
Quarter: 2025Q4

REPORT INFORMATION
  Report Type: Spontaneous
  Country: EU (occurrence: EU)
  Receive Date: 20251127
  Receipt Date: 20251127
  Transmission Date: 20260117
  Serious: Yes (Hospitalization, Other)
  Sender: ALEXION PHARMACEUTICALS
  Company Number: None

PATIENT
  Age: 72 Year
  Sex: Female
  Weight: 66 kg

DRUGS (2)
  1. IMFINZI [Suspect]
     Active Substance: DURVALUMAB
     Indication: Adjuvant therapy
     Dosage: 600 MILLIGRAM
     Dates: start: 20210930, end: 20220606
  2. IMFINZI [Suspect]
     Active Substance: DURVALUMAB
     Indication: Lung adenocarcinoma

REACTIONS (8)
  - Dizziness [Unknown]
  - Malaise [Unknown]
  - Colitis ulcerative [Recovered/Resolved with Sequelae]
  - Clostridium difficile colitis [Recovered/Resolved]
  - Haematochezia [Recovered/Resolved]
  - Proctitis haemorrhagic [Unknown]
  - Frequent bowel movements [Recovered/Resolved]
  - Weight decreased [Recovered/Resolved]

NARRATIVE: CASE EVENT DATE: 20220101
